FAERS Safety Report 18507145 (Version 1)
Quarter: 2020Q4

REPORT INFORMATION
  Report Type: Spontaneous
  Country: US (occurrence: US)
  Receive Date: 20201116
  Receipt Date: 20201116
  Transmission Date: 20210114
  Serious: No
  Sender: FDA-Public Use
  Company Number: US-TAKEDA-2020TUS046623

PATIENT
  Sex: Female

DRUGS (11)
  1. PHENERGAN [Concomitant]
     Active Substance: PROMETHAZINE HYDROCHLORIDE
  2. TOPAMAX [Concomitant]
     Active Substance: TOPIRAMATE
  3. CUVITRU [Suspect]
     Active Substance: HUMAN IMMUNOGLOBULIN G
     Indication: IMMUNODEFICIENCY COMMON VARIABLE
     Dosage: 10 GRAM, 1/WEEK
     Route: 058
     Dates: start: 20200326
  4. HYDROCHLOROTHIAZIDE. [Concomitant]
     Active Substance: HYDROCHLOROTHIAZIDE
  5. BACLOFEN. [Concomitant]
     Active Substance: BACLOFEN
  6. EMBEDA [Concomitant]
     Active Substance: MORPHINE SULFATE\NALTREXONE HYDROCHLORIDE
  7. LEXAPRO [Concomitant]
     Active Substance: ESCITALOPRAM OXALATE
  8. TRAZODONE [Concomitant]
     Active Substance: TRAZODONE HYDROCHLORIDE
  9. CHANTIX [Concomitant]
     Active Substance: VARENICLINE TARTRATE
  10. NEURONTIN [Concomitant]
     Active Substance: GABAPENTIN
  11. CENTRUM SILVER +50 [Concomitant]
     Active Substance: MINERALS\VITAMINS

REACTIONS (7)
  - Diarrhoea [Not Recovered/Not Resolved]
  - Illness [Recovering/Resolving]
  - Feeding disorder [Recovering/Resolving]
  - Oropharyngeal pain [Unknown]
  - Hypogeusia [Recovering/Resolving]
  - Anosmia [Recovering/Resolving]
  - Rhinorrhoea [Recovering/Resolving]
